FAERS Safety Report 25088028 (Version 1)
Quarter: 2025Q1

REPORT INFORMATION
  Report Type: Report from Study
  Country: CA (occurrence: CA)
  Receive Date: 20250318
  Receipt Date: 20250318
  Transmission Date: 20250409
  Serious: Yes (Other)
  Sender: JOHNSON AND JOHNSON
  Company Number: CA-VIIV HEALTHCARE-CA2024140219

PATIENT
  Age: 40 Year
  Sex: Male

DRUGS (5)
  1. RILPIVIRINE [Suspect]
     Active Substance: RILPIVIRINE
     Indication: HIV infection
     Dosage: UNK UNK, Q2M (CABOTEGRAVIR 600MG/3ML RILPIVIRINE 900MG/3ML)
     Route: 030
     Dates: start: 20240808
  2. RILPIVIRINE [Suspect]
     Active Substance: RILPIVIRINE
     Dosage: UNK UNK, Q2M CABOTEGRAVIR 600MG/3ML RILPIVIRINE 900MG/3ML
     Route: 030
     Dates: start: 20240808
  3. CABOTEGRAVIR [Suspect]
     Active Substance: CABOTEGRAVIR
     Indication: HIV infection
     Dosage: UNK UNK, Q2M (CABOTEGRAVIR 600MG/3ML RILPIVIRINE 900MG/3ML )
     Route: 030
     Dates: start: 20240808
  4. CABOTEGRAVIR [Suspect]
     Active Substance: CABOTEGRAVIR
     Dosage: UNK UNK, Q2M CABOTEGRAVIR 600MG/3ML RILPIVIRINE 900MG/3ML
     Route: 030
  5. BACLOFEN [Concomitant]
     Active Substance: BACLOFEN
     Indication: Myelomalacia

REACTIONS (10)
  - Bacterial prostatitis [Unknown]
  - Fatigue [Unknown]
  - Depression [Recovered/Resolved]
  - Synovial cyst [Recovered/Resolved]
  - Myalgia [Unknown]
  - Injection site pain [Unknown]
  - Pain in extremity [Unknown]
  - Back pain [Unknown]
  - Chills [Unknown]
  - Psychiatric symptom [Recovered/Resolved]

NARRATIVE: CASE EVENT DATE: 20240901
